FAERS Safety Report 4567318-3 (Version None)
Quarter: 2005Q1

REPORT INFORMATION
  Report Type: 
  Country: None (occurrence: None)
  Receive Date: 20050127
  Receipt Date: 20041214
  Transmission Date: 20050727
  Serious: Yes (Hospitalization)
  Sender: FDA-Public Use
  Company Number: 2004BI001549

PATIENT
  Age: 62 Year
  Sex: Female
  Weight: 61.2356 kg

DRUGS (13)
  1. AVONEX [Suspect]
     Indication: MULTIPLE SCLEROSIS
     Dosage: 30 UG; QW; IM
     Route: 030
     Dates: start: 20040101, end: 20040801
  2. AVONEX [Suspect]
     Indication: MULTIPLE SCLEROSIS
     Dosage: 30 UG; QW; IM
     Route: 030
     Dates: start: 20041101
  3. PREMARIN [Concomitant]
  4. ZESTRIL [Concomitant]
  5. NEURONTIN [Concomitant]
  6. BACLOFEN [Concomitant]
  7. DICYCLOMINE [Concomitant]
  8. DARVOCET [Concomitant]
  9. VITAMIN AND MINERAL PRENATAL SUPPLEMENT W/ FOLIC ACID CAP [Concomitant]
  10. FISH OIL (NOS) [Concomitant]
  11. BABY ASPIRIN [NOS] [Concomitant]
  12. DETROL [Concomitant]
  13. NOVANTRONE [Concomitant]

REACTIONS (8)
  - ABDOMINAL PAIN UPPER [None]
  - ASTHENIA [None]
  - CONDITION AGGRAVATED [None]
  - CYSTOCELE [None]
  - FATIGUE [None]
  - INFLUENZA LIKE ILLNESS [None]
  - POST PROCEDURAL PAIN [None]
  - URINARY INCONTINENCE [None]
